FAERS Safety Report 6750976-2 (Version None)
Quarter: 2010Q2

REPORT INFORMATION
  Report Type: 
  Country: None (occurrence: None)
  Receive Date: 20100602
  Receipt Date: 20100602
  Transmission Date: 20101027
  Serious: Yes (Hospitalization)
  Sender: FDA-Public Use
  Company Number: None

PATIENT
  Sex: Male
  Weight: 12.7007 kg

DRUGS (4)
  1. TYLENOL INFANT JOHNSON + JOHNSON [Suspect]
     Indication: NASOPHARYNGITIS
     Dosage: 1 TSP 6 HOURS PO
     Route: 048
     Dates: start: 20100501, end: 20100510
  2. TYLENOL INFANT JOHNSON + JOHNSON [Suspect]
     Indication: PYREXIA
     Dosage: 1 TSP 6 HOURS PO
     Route: 048
     Dates: start: 20100501, end: 20100510
  3. TYLENOL CHILDRENS JOHNSON + JOHNSON [Suspect]
     Indication: NASOPHARYNGITIS
     Dosage: 1 TSP 6 HOURS PO
     Route: 048
     Dates: start: 20100501, end: 20100510
  4. TYLENOL CHILDRENS JOHNSON + JOHNSON [Suspect]
     Indication: PYREXIA
     Dosage: 1 TSP 6 HOURS PO
     Route: 048
     Dates: start: 20100501, end: 20100510

REACTIONS (3)
  - ABSCESS NECK [None]
  - BACTERIAL INFECTION [None]
  - RED BLOOD CELL COUNT DECREASED [None]
